FAERS Safety Report 6182907-0 (Version None)
Quarter: 2009Q2

REPORT INFORMATION
  Report Type: 
  Country: None (occurrence: None)
  Receive Date: 20090507
  Receipt Date: 20090427
  Transmission Date: 20091009
  Serious: Yes (Other)
  Sender: FDA-Public Use
  Company Number: US-MERCK-0810USA02086

PATIENT
  Age: 72 Year
  Sex: Female

DRUGS (1)
  1. FOSAMAX [Suspect]
     Indication: OSTEOPOROSIS
     Route: 048
     Dates: start: 19990101, end: 20080101

REACTIONS (8)
  - EXOSTOSIS [None]
  - FISTULA DISCHARGE [None]
  - JAW DISORDER [None]
  - ORAL DISORDER [None]
  - OSTEONECROSIS [None]
  - RENAL DISORDER [None]
  - RESORPTION BONE INCREASED [None]
  - TOOTH DISORDER [None]
